FAERS Safety Report 20810267 (Version 2)
Quarter: 2022Q2

REPORT INFORMATION
  Report Type: Spontaneous
  Country: US (occurrence: US)
  Receive Date: 20220510
  Receipt Date: 20220615
  Transmission Date: 20220721
  Serious: No
  Sender: FDA-Public Use
  Company Number: US-PFIZER INC-202200645969

PATIENT
  Age: 86 Year
  Sex: Female

DRUGS (2)
  1. ESTRADIOL [Suspect]
     Active Substance: ESTRADIOL
     Dosage: UNK
  2. ESTRACE [Suspect]
     Active Substance: ESTRADIOL
     Dosage: UNK

REACTIONS (1)
  - Alopecia [Unknown]
